FAERS Safety Report 5420407-3 (Version None)
Quarter: 2007Q3

REPORT INFORMATION
  Report Type: 
  Country: None (occurrence: None)
  Receive Date: 20070816
  Receipt Date: 20070809
  Transmission Date: 20080115
  Serious: Yes (Hospitalization, Other)
  Sender: FDA-Public Use
  Company Number: 39763

PATIENT
  Age: 25 Year
  Sex: Female

DRUGS (2)
  1. AMIKACIN SULFATE [Suspect]
     Indication: PSEUDOMONAS INFECTION
     Dosage: INHALATION VIA NEBULIZER
     Route: 055
     Dates: start: 20070809
  2. AMIKACIN SULFATE [Suspect]
     Indication: STAPHYLOCOCCAL INFECTION
     Dosage: INHALATION VIA NEBULIZER
     Route: 055
     Dates: start: 20070809

REACTIONS (5)
  - BURNING SENSATION [None]
  - COUGH [None]
  - INCORRECT ROUTE OF DRUG ADMINISTRATION [None]
  - MEDICATION ERROR [None]
  - RESPIRATORY TRACT IRRITATION [None]
